FAERS Safety Report 7519313-X (Version None)
Quarter: 2011Q2

REPORT INFORMATION
  Report Type: 
  Country: None (occurrence: None)
  Receive Date: 20110523
  Receipt Date: 20110506
  Transmission Date: 20111010
  Serious: Yes (Other)
  Sender: FDA-Public Use
  Company Number: 8045753

PATIENT
  Sex: Female

DRUGS (3)
  1. PRENATAL VITAMINS /01549301/ [Concomitant]
  2. KEPPRA [Suspect]
     Dosage: (750 MG BID ORAL)
     Route: 048
     Dates: start: 20071101
  3. FOLIC ACID [Concomitant]

REACTIONS (3)
  - PLACENTAL DISORDER [None]
  - PREGNANCY [None]
  - DRUG EXPOSURE DURING PREGNANCY [None]
